FAERS Safety Report 11209261 (Version 1)
Quarter: 2015Q2

REPORT INFORMATION
  Report Type: Spontaneous
  Country: IT (occurrence: IT)
  Receive Date: 20150622
  Receipt Date: 20150622
  Transmission Date: 20150821
  Serious: Yes (Hospitalization)
  Sender: FDA-Public Use
  Company Number: PHHY2015IT069826

PATIENT
  Age: 3 Year
  Sex: Female
  Weight: 12 kg

DRUGS (1)
  1. DEFERASIROX [Suspect]
     Active Substance: DEFERASIROX
     Indication: THALASSAEMIA BETA
     Dosage: 41 MG/KG, QD
     Route: 065

REACTIONS (17)
  - Hyperammonaemia [Recovered/Resolved]
  - Fanconi syndrome acquired [Recovered/Resolved]
  - Haemoglobinuria [Recovered/Resolved]
  - Altered state of consciousness [Recovered/Resolved]
  - Myoclonus [Recovered/Resolved]
  - Glycosuria [Recovered/Resolved]
  - Proteinuria [Recovered/Resolved]
  - Weight decreased [Recovered/Resolved]
  - Trismus [Recovered/Resolved]
  - Ketonuria [Recovered/Resolved]
  - Abnormal behaviour [Recovered/Resolved]
  - Transaminases increased [Recovered/Resolved]
  - Pyrexia [Recovered/Resolved]
  - Vomiting [Recovered/Resolved]
  - Anuria [Recovered/Resolved]
  - Metabolic acidosis [Recovered/Resolved]
  - Acidosis hyperchloraemic [Recovered/Resolved]
